FAERS Safety Report 18189270 (Version 2)
Quarter: 2020Q3

REPORT INFORMATION
  Report Type: Spontaneous
  Country: FR (occurrence: FR)
  Receive Date: 20200824
  Receipt Date: 20200828
  Transmission Date: 20201103
  Serious: Yes (Other)
  Sender: FDA-Public Use
  Company Number: FR-MYLANLABS-2020M1073172

PATIENT
  Age: 62 Year
  Sex: Male

DRUGS (4)
  1. VANCOMYCIN MYLAN [Suspect]
     Active Substance: VANCOMYCIN
     Indication: INFECTION
     Dosage: 1 DOSAGE FORM, QD(2.2 ? 3 G/24H)
     Route: 042
     Dates: start: 20200627, end: 20200709
  2. ZYVOXID [Suspect]
     Active Substance: LINEZOLID
     Indication: ANTIBIOTIC PROPHYLAXIS
     Dosage: 1200 MILLIGRAM, QD
     Route: 048
     Dates: start: 20200709, end: 20200722
  3. LINEZOLIDE [Suspect]
     Active Substance: LINEZOLID
     Indication: ANTIBIOTIC PROPHYLAXIS
     Dosage: 1200 MILLIGRAM, QD
     Route: 048
     Dates: start: 20200709, end: 20200722
  4. AZACTAM [Suspect]
     Active Substance: AZTREONAM
     Indication: INFECTION
     Dosage: 6 GRAM, QD
     Route: 042
     Dates: start: 20200627, end: 20200713

REACTIONS (1)
  - Pancytopenia [Recovering/Resolving]

NARRATIVE: CASE EVENT DATE: 20200713
